FAERS Safety Report 15302385 (Version 1)
Quarter: 2018Q3

REPORT INFORMATION
  Report Type: Spontaneous
  Country: US (occurrence: US)
  Receive Date: 20180821
  Receipt Date: 20180821
  Transmission Date: 20181010
  Serious: Yes (Life-Threatening, Hospitalization, Other)
  Sender: FDA-Public Use
  Company Number: US-INDIVIOR LIMITED-INDV-113312-2018

PATIENT
  Age: 28 Year
  Sex: Female

DRUGS (3)
  1. SUBOXONE [Suspect]
     Active Substance: BUPRENORPHINE HYDROCHLORIDE\NALOXONE HYDROCHLORIDE
     Indication: DRUG DEPENDENCE
     Dosage: UNK
     Route: 065
  2. SUBOXONE [Suspect]
     Active Substance: BUPRENORPHINE HYDROCHLORIDE\NALOXONE HYDROCHLORIDE
     Dosage: UNK
     Route: 065
     Dates: start: 201808, end: 201808
  3. SUBOXONE [Suspect]
     Active Substance: BUPRENORPHINE HYDROCHLORIDE\NALOXONE HYDROCHLORIDE
     Dosage: UNK
     Route: 065
     Dates: start: 201808, end: 20180803

REACTIONS (16)
  - Drug dependence [Unknown]
  - Drug withdrawal syndrome [Unknown]
  - Agitation [Unknown]
  - Nausea [Unknown]
  - Drug dependence [Unknown]
  - Loss of consciousness [Recovered/Resolved]
  - Toxicity to various agents [Recovered/Resolved]
  - Overdose [Recovered/Resolved]
  - Nervousness [Unknown]
  - Therapy cessation [Recovered/Resolved]
  - Intentional underdose [Recovered/Resolved]
  - Cardiac arrest [Recovered/Resolved]
  - Drug intolerance [Unknown]
  - Drug detoxification [Recovered/Resolved]
  - Tremor [Unknown]
  - Panic attack [Unknown]

NARRATIVE: CASE EVENT DATE: 201808
